FAERS Safety Report 19093746 (Version 1)
Quarter: 2021Q2

REPORT INFORMATION
  Report Type: Spontaneous
  Country: CN (occurrence: CN)
  Receive Date: 20210405
  Receipt Date: 20210405
  Transmission Date: 20210717
  Serious: Yes (Other)
  Sender: FDA-Public Use
  Company Number: CN-ROCHE-2801175

PATIENT
  Age: 27 Year
  Sex: Male

DRUGS (82)
  1. METHOTREXATE. [Concomitant]
     Active Substance: METHOTREXATE
     Indication: BURKITT^S LYMPHOMA
     Dosage: PER WEEK
     Dates: start: 2020
  2. DEXAMETHASONE. [Concomitant]
     Active Substance: DEXAMETHASONE
     Dates: start: 20201228
  3. CYCLOPHOSPHAMIDE. [Concomitant]
     Active Substance: CYCLOPHOSPHAMIDE
     Indication: BURKITT^S LYMPHOMA
     Dosage: ON DAY 1?3
     Dates: start: 20200416
  4. CYCLOPHOSPHAMIDE. [Concomitant]
     Active Substance: CYCLOPHOSPHAMIDE
     Dosage: ON DAY 1?3
     Dates: start: 20200618
  5. MESNA. [Concomitant]
     Active Substance: MESNA
     Dosage: R + HYPERCVAD A REGIMEN
     Dates: start: 20201012
  6. VINCRISTINE [Concomitant]
     Active Substance: VINCRISTINE
     Dates: start: 20201106
  7. VINCRISTINE [Concomitant]
     Active Substance: VINCRISTINE
     Dosage: ON 25 JAN 2021 AND 02 MAR 2021, R?EPOCH REGIMEN
     Dates: start: 20210125
  8. PIRARUBICIN [Concomitant]
     Active Substance: PIRARUBICIN
     Dosage: ON 25 JAN 2021 AND 02 MAR 2021, R?EPOCH REGIMEN
     Dates: start: 20210125
  9. ETOPOSIDE. [Concomitant]
     Active Substance: ETOPOSIDE
     Indication: BURKITT^S LYMPHOMA
     Dosage: ON 25 JAN 2021 AND 02 MAR 2021, R?EPOCH REGIMEN
     Dates: start: 20210125
  10. MABTHERA [Suspect]
     Active Substance: RITUXIMAB
     Dosage: R + HYPERCVAD A REGIMEN
     Route: 065
     Dates: start: 20201012
  11. MABTHERA [Suspect]
     Active Substance: RITUXIMAB
     Dosage: ON 25 JAN 2021 AND 02 MAR 2021, R?EPOCH REGIMEN
     Route: 065
     Dates: start: 20210125
  12. CYTARABINE. [Concomitant]
     Active Substance: CYTARABINE
     Indication: METASTASES TO BONE
     Route: 041
     Dates: start: 20200528
  13. CYTARABINE. [Concomitant]
     Active Substance: CYTARABINE
     Dosage: R + HYPERCVAD B REGIMEN
     Dates: start: 20200709
  14. LAMIVUDINE. [Concomitant]
     Active Substance: LAMIVUDINE
     Dates: start: 2020
  15. CYCLOPHOSPHAMIDE. [Concomitant]
     Active Substance: CYCLOPHOSPHAMIDE
     Dates: start: 20201106
  16. CYCLOPHOSPHAMIDE. [Concomitant]
     Active Substance: CYCLOPHOSPHAMIDE
     Dates: start: 20201106
  17. MESNA. [Concomitant]
     Active Substance: MESNA
     Indication: BURKITT^S LYMPHOMA
     Dosage: ON DAY 1?3
     Dates: start: 20200416
  18. MESNA. [Concomitant]
     Active Substance: MESNA
     Dosage: ON DAY 1?3
     Dates: start: 20200618
  19. VINCRISTINE [Concomitant]
     Active Substance: VINCRISTINE
     Dosage: R + HYPERCVAD A REGIMEN
     Dates: start: 20201012
  20. CALCIUM FOLINATE [Concomitant]
     Active Substance: LEUCOVORIN CALCIUM
     Dosage: R + HYPERCVAD B REGIMEN
     Dates: start: 20200709
  21. MABTHERA [Suspect]
     Active Substance: RITUXIMAB
     Dosage: ON DAY 0
     Route: 065
     Dates: start: 20200618
  22. CYTARABINE. [Concomitant]
     Active Substance: CYTARABINE
     Dosage: R + HYPERCVAD B REGIMEN
     Dates: start: 20200831
  23. METHOTREXATE. [Concomitant]
     Active Substance: METHOTREXATE
     Indication: METASTASES TO BONE
     Dosage: AT THE FIRST HOUR
     Route: 041
     Dates: start: 20200528
  24. METHOTREXATE. [Concomitant]
     Active Substance: METHOTREXATE
     Dosage: 24 JUN 2020 AND 02 JUL 2020, 1 WEEK AS A CYCLE
     Route: 037
  25. METHOTREXATE. [Concomitant]
     Active Substance: METHOTREXATE
     Dosage: FOR 1 HOUR
     Dates: start: 20201106
  26. CYCLOPHOSPHAMIDE. [Concomitant]
     Active Substance: CYCLOPHOSPHAMIDE
     Indication: METASTASES TO BONE
     Dosage: R + HYPERCVAD A REGIMEN
     Dates: start: 20200507
  27. CALCIUM FOLINATE [Concomitant]
     Active Substance: LEUCOVORIN CALCIUM
     Indication: METASTASES TO BONE
     Dosage: PER 6 HOURS FOR 8 TIMES
     Route: 041
     Dates: start: 20200528
  28. CALCIUM FOLINATE [Concomitant]
     Active Substance: LEUCOVORIN CALCIUM
     Dosage: FOR 5 TIMES
     Dates: start: 20201106
  29. MABTHERA [Suspect]
     Active Substance: RITUXIMAB
     Indication: METASTASES TO BONE
     Dosage: R + HYPERCVAD A REGIMEN
     Route: 065
     Dates: start: 20200507
  30. CYTARABINE. [Concomitant]
     Active Substance: CYTARABINE
     Indication: BURKITT^S LYMPHOMA
     Dosage: PER WEEK
     Dates: start: 2020
  31. METHOTREXATE. [Concomitant]
     Active Substance: METHOTREXATE
     Dosage: FOR 11 HOURS
     Dates: start: 20201106
  32. DEXAMETHASONE. [Concomitant]
     Active Substance: DEXAMETHASONE
     Dosage: ON 24 JUN 2020 AND 02 JUL 2020, 1 WEEK AS A CYCLE
     Route: 037
  33. DEXAMETHASONE. [Concomitant]
     Active Substance: DEXAMETHASONE
     Dosage: R + HYPERCVAD A REGIMEN
     Dates: start: 20201012
  34. DOLUTEGRAVIR [Concomitant]
     Active Substance: DOLUTEGRAVIR
     Dates: start: 2020
  35. CYCLOPHOSPHAMIDE. [Concomitant]
     Active Substance: CYCLOPHOSPHAMIDE
     Dosage: ON 25 JAN 2021 AND 02 MAR 2021, R?EPOCH REGIMEN
     Dates: start: 20210125
  36. MESNA. [Concomitant]
     Active Substance: MESNA
     Dosage: R + HYPERCVAD A REGIMEN
     Dates: start: 20200803
  37. VINCRISTINE [Concomitant]
     Active Substance: VINCRISTINE
     Dosage: R + HYPERCVAD A REGIMEN
     Dates: start: 20200803
  38. PIRARUBICIN [Concomitant]
     Active Substance: PIRARUBICIN
     Dosage: R + HYPERCVAD A REGIMEN
     Dates: start: 20200803
  39. CALCIUM FOLINATE [Concomitant]
     Active Substance: LEUCOVORIN CALCIUM
     Dates: start: 20201106
  40. DEXAMETHASONE. [Concomitant]
     Active Substance: DEXAMETHASONE
     Indication: METASTASES TO BONE
     Dosage: PER WEEK
     Dates: start: 2020
  41. DEXAMETHASONE. [Concomitant]
     Active Substance: DEXAMETHASONE
     Dates: start: 20200416
  42. DEXAMETHASONE. [Concomitant]
     Active Substance: DEXAMETHASONE
     Dates: start: 20200528
  43. DEXAMETHASONE. [Concomitant]
     Active Substance: DEXAMETHASONE
     Dosage: R + HYPERCVAD B REGIMEN
     Dates: start: 20200709
  44. CYCLOPHOSPHAMIDE. [Concomitant]
     Active Substance: CYCLOPHOSPHAMIDE
     Dosage: R + HYPERCVAD A REGIMEN
     Dates: start: 20200803
  45. VINCRISTINE [Concomitant]
     Active Substance: VINCRISTINE
     Indication: BURKITT^S LYMPHOMA
     Dosage: R + HYPERCVAD A REGIMEN
     Dates: start: 20200507
  46. PIRARUBICIN [Concomitant]
     Active Substance: PIRARUBICIN
     Dates: start: 20201228
  47. CALCIUM FOLINATE [Concomitant]
     Active Substance: LEUCOVORIN CALCIUM
     Dosage: PER DAY
     Dates: start: 20200618
  48. CALCIUM FOLINATE [Concomitant]
     Active Substance: LEUCOVORIN CALCIUM
     Dosage: R + HYPERCVAD B REGIMEN
     Dates: start: 20200831
  49. MABTHERA [Suspect]
     Active Substance: RITUXIMAB
     Dosage: R + HYPERCVAD B REGIMEN
     Route: 065
     Dates: start: 20200709
  50. MABTHERA [Suspect]
     Active Substance: RITUXIMAB
     Dosage: R + HYPERCVAD B REGIMEN
     Route: 065
     Dates: start: 20200831
  51. MABTHERA [Suspect]
     Active Substance: RITUXIMAB
     Dosage: ON DAY 0
     Route: 065
     Dates: start: 20201228
  52. CYTARABINE. [Concomitant]
     Active Substance: CYTARABINE
     Dosage: 24 JUN 2020 AND 02 JUL 2020, 1 WEEK AS A CYCLE
     Route: 037
  53. METHOTREXATE. [Concomitant]
     Active Substance: METHOTREXATE
     Dosage: R + HYPERCVAD B REGIMEN
     Dates: start: 20200709
  54. DEXAMETHASONE. [Concomitant]
     Active Substance: DEXAMETHASONE
     Dosage: R + HYPERCVAD A REGIMEN
     Dates: start: 20200507
  55. DEXAMETHASONE. [Concomitant]
     Active Substance: DEXAMETHASONE
     Dosage: R + HYPERCVAD B REGIMEN
     Dates: start: 20200831
  56. CYCLOPHOSPHAMIDE. [Concomitant]
     Active Substance: CYCLOPHOSPHAMIDE
     Dosage: R + HYPERCVAD A REGIMEN
     Dates: start: 20201012
  57. CYCLOPHOSPHAMIDE. [Concomitant]
     Active Substance: CYCLOPHOSPHAMIDE
     Dates: start: 20201228
  58. MESNA. [Concomitant]
     Active Substance: MESNA
     Indication: METASTASES TO BONE
     Dosage: R + HYPERCVAD A REGIMEN
     Dates: start: 20200507
  59. VINCRISTINE [Concomitant]
     Active Substance: VINCRISTINE
     Indication: METASTASES TO BONE
     Dates: start: 20200416
  60. VINCRISTINE [Concomitant]
     Active Substance: VINCRISTINE
     Dosage: ON DAY 4
     Dates: start: 20200618
  61. CALCIUM FOLINATE [Concomitant]
     Active Substance: LEUCOVORIN CALCIUM
     Indication: BURKITT^S LYMPHOMA
     Dosage: FOR THE FIRST DOSE
     Route: 041
     Dates: start: 20200528
  62. CALCIUM FOLINATE [Concomitant]
     Active Substance: LEUCOVORIN CALCIUM
     Dosage: FOR THE FIRST DOSE, ON DAY 10
     Dates: start: 20201106
  63. CALCIUM FOLINATE [Concomitant]
     Active Substance: LEUCOVORIN CALCIUM
     Dosage: FOR 5 TIMES
     Dates: start: 20201106
  64. MABTHERA [Suspect]
     Active Substance: RITUXIMAB
     Indication: BURKITT^S LYMPHOMA
     Dosage: ON DAY 0
     Route: 065
     Dates: start: 20200416
  65. METHOTREXATE. [Concomitant]
     Active Substance: METHOTREXATE
     Dosage: R + HYPERCVAD B REGIMEN
     Dates: start: 20200831
  66. DEXAMETHASONE. [Concomitant]
     Active Substance: DEXAMETHASONE
     Indication: BURKITT^S LYMPHOMA
     Dates: start: 20200408
  67. DEXAMETHASONE. [Concomitant]
     Active Substance: DEXAMETHASONE
     Dosage: R + HYPERCVAD A REGIMEN
     Dates: start: 20200803
  68. TENOFOVIR DISOPROXIL FUMARATE. [Concomitant]
     Active Substance: TENOFOVIR DISOPROXIL FUMARATE
     Dates: start: 2020
  69. VINCRISTINE [Concomitant]
     Active Substance: VINCRISTINE
     Dates: start: 20201228
  70. PIRARUBICIN [Concomitant]
     Active Substance: PIRARUBICIN
     Indication: BURKITT^S LYMPHOMA
     Dates: start: 20200416
  71. PIRARUBICIN [Concomitant]
     Active Substance: PIRARUBICIN
     Indication: METASTASES TO BONE
     Dosage: R + HYPERCVAD A REGIMEN
     Dates: start: 20200507
  72. PIRARUBICIN [Concomitant]
     Active Substance: PIRARUBICIN
     Dates: start: 20201106
  73. ETOPOSIDE. [Concomitant]
     Active Substance: ETOPOSIDE
     Indication: METASTASES TO BONE
     Dates: start: 20201228
  74. MABTHERA [Suspect]
     Active Substance: RITUXIMAB
     Dosage: ON DAY 0
     Route: 065
     Dates: start: 20200528
  75. MABTHERA [Suspect]
     Active Substance: RITUXIMAB
     Dosage: R + HYPERCVAD A REGIMEN
     Route: 065
     Dates: start: 20200803
  76. MABTHERA [Suspect]
     Active Substance: RITUXIMAB
     Dosage: ON DAY 0
     Route: 065
     Dates: start: 20201106
  77. MABTHERA [Suspect]
     Active Substance: RITUXIMAB
     Route: 065
     Dates: start: 20201228
  78. METHOTREXATE. [Concomitant]
     Active Substance: METHOTREXATE
     Dosage: AT THE SECOND TO TWELFTH HOURS
     Route: 041
     Dates: start: 20200528
  79. DEXAMETHASONE. [Concomitant]
     Active Substance: DEXAMETHASONE
     Dates: start: 20200618
  80. DEXAMETHASONE. [Concomitant]
     Active Substance: DEXAMETHASONE
     Dosage: ON 25 JAN 2021 AND 02 MAR 2021, R?EPOCH REGIMEN
     Dates: start: 20210125
  81. PIRARUBICIN [Concomitant]
     Active Substance: PIRARUBICIN
     Dosage: ON DAY 4
     Dates: start: 20200618
  82. PIRARUBICIN [Concomitant]
     Active Substance: PIRARUBICIN
     Dosage: R + HYPERCVAD A REGIMEN
     Dates: start: 20201012

REACTIONS (12)
  - Rash [Unknown]
  - Viral load increased [Unknown]
  - Cough [Unknown]
  - Cytomegalovirus chorioretinitis [Unknown]
  - Off label use [Unknown]
  - Agranulocytosis [Unknown]
  - Fungal oesophagitis [Unknown]
  - Myelosuppression [Unknown]
  - Pyrexia [Unknown]
  - Cytomegalovirus viraemia [Unknown]
  - Platelet count decreased [Unknown]
  - Headache [Unknown]

NARRATIVE: CASE EVENT DATE: 2021
